FAERS Safety Report 8138109-1 (Version None)
Quarter: 2012Q1

REPORT INFORMATION
  Report Type: 
  Country: None (occurrence: None)
  Receive Date: 20120215
  Receipt Date: 20120215
  Transmission Date: 20120608
  Serious: Yes (Disabling, Other)
  Sender: FDA-Public Use
  Company Number: None

PATIENT
  Age: 55 Year
  Sex: Female
  Weight: 587.85 kg

DRUGS (13)
  1. ZELBORAF [Suspect]
     Indication: METASTATIC MALIGNANT MELANOMA
     Dosage: 960 MG
     Route: 048
     Dates: start: 20120201, end: 20120213
  2. PLAQUENIL [Concomitant]
     Route: 048
  3. TRAMADOL HCL [Concomitant]
     Route: 048
  4. ATIVAN [Concomitant]
     Route: 048
  5. EFFEXOR [Concomitant]
     Route: 048
  6. DEXAMETHASONE [Concomitant]
     Route: 048
  7. REGLAN [Concomitant]
     Route: 048
  8. MAGIC MOUTHWASH [Concomitant]
  9. PREDNISONE TAB [Concomitant]
     Route: 048
  10. ZANTAC [Concomitant]
     Route: 048
  11. NORCO [Concomitant]
     Route: 048
  12. PREVACID [Concomitant]
     Route: 048
  13. PHENERGAN [Concomitant]
     Route: 048

REACTIONS (2)
  - JAUNDICE [None]
  - OCULAR ICTERUS [None]
